FAERS Safety Report 24846558 (Version 1)
Quarter: 2025Q1

REPORT INFORMATION
  Report Type: Spontaneous
  Country: FR (occurrence: FR)
  Receive Date: 20250115
  Receipt Date: 20250115
  Transmission Date: 20250409
  Serious: Yes (Hospitalization)
  Sender: TEVA
  Company Number: None

PATIENT
  Age: 63 Year
  Sex: Male
  Weight: 80 kg

DRUGS (3)
  1. AMOXICILLIN [Suspect]
     Active Substance: AMOXICILLIN
     Indication: Osteitis
     Route: 048
     Dates: start: 20241110, end: 20241115
  2. ZOLEDRONIC ACID [Suspect]
     Active Substance: ZOLEDRONIC ACID
     Indication: Osteoporotic fracture
     Route: 030
     Dates: start: 20241113, end: 20241113
  3. AMPICILLIN TRIHYDRATE\CLAVULANATE POTASSIUM [Suspect]
     Active Substance: AMPICILLIN TRIHYDRATE\CLAVULANATE POTASSIUM
     Indication: Osteitis
     Route: 048
     Dates: start: 20241110, end: 20241115

REACTIONS (1)
  - Symmetrical drug-related intertriginous and flexural exanthema [Recovering/Resolving]

NARRATIVE: CASE EVENT DATE: 20241114
